FAERS Safety Report 12499661 (Version 1)
Quarter: 2016Q2

REPORT INFORMATION
  Report Type: Spontaneous
  Country: US (occurrence: US)
  Receive Date: 20160627
  Receipt Date: 20160627
  Transmission Date: 20160815
  Serious: No
  Sender: FDA-Public Use
  Company Number: US-B.I. PHARMACEUTICALS,INC./RIDGEFIELD-2016-BI-38139BP

PATIENT
  Sex: Male
  Weight: 91 kg

DRUGS (10)
  1. TERAZOCIN [Concomitant]
     Dosage: 2 ANZ
     Route: 048
  2. FISH OIL [Concomitant]
     Active Substance: FISH OIL
     Indication: SUPPLEMENTATION THERAPY
     Route: 065
  3. FLOMAX [Suspect]
     Active Substance: TAMSULOSIN HYDROCHLORIDE
     Indication: PRODUCT USED FOR UNKNOWN INDICATION
     Route: 065
  4. TERAZOCIN [Concomitant]
     Dosage: 5 MG
     Route: 048
     Dates: start: 201506
  5. ATORVASTATIN [Concomitant]
     Active Substance: ATORVASTATIN
     Indication: BLOOD CHOLESTEROL INCREASED
     Route: 065
  6. FINASTERIDE. [Concomitant]
     Active Substance: FINASTERIDE
     Indication: PRODUCT USED FOR UNKNOWN INDICATION
     Dosage: 5 MG
     Route: 065
  7. LATANOPROST. [Concomitant]
     Active Substance: LATANOPROST
     Indication: INTRAOCULAR PRESSURE INCREASED
     Route: 065
     Dates: start: 2015
  8. TERAZOCIN [Concomitant]
     Indication: BENIGN PROSTATIC HYPERPLASIA
     Dosage: 2 MG
     Route: 048
     Dates: start: 201506
  9. TERAZOCIN [Concomitant]
     Dosage: 2 ANZ
     Route: 048
  10. VITAMIN E [Concomitant]
     Active Substance: .ALPHA.-TOCOPHEROL
     Indication: SUPPLEMENTATION THERAPY
     Route: 065

REACTIONS (1)
  - Dysuria [Not Recovered/Not Resolved]
